FAERS Safety Report 4685121-0 (Version None)
Quarter: 2005Q2

REPORT INFORMATION
  Report Type: 
  Country: None (occurrence: None)
  Receive Date: 20050608
  Receipt Date: 20050527
  Transmission Date: 20051028
  Serious: Yes (Life-Threatening)
  Sender: FDA-Public Use
  Company Number: FR-NOVOPROD-244487

PATIENT
  Age: 50 Year
  Sex: Female

DRUGS (2)
  1. NOVONORM [Suspect]
     Indication: DIABETES MELLITUS
  2. LANTUS [Concomitant]
     Indication: DIABETES MELLITUS

REACTIONS (2)
  - EPILEPSY [None]
  - HYPOGLYCAEMIA [None]
